FAERS Safety Report 5548101-9 (Version None)
Quarter: 2007Q4

REPORT INFORMATION
  Report Type: 
  Country: None (occurrence: None)
  Receive Date: 20071211
  Receipt Date: 20070307
  Transmission Date: 20080405
  Serious: No
  Sender: FDA-Public Use
  Company Number: US-AMGEN-KDL214268

PATIENT
  Sex: Female

DRUGS (2)
  1. ENBREL [Suspect]
     Indication: RHEUMATOID ARTHRITIS
     Route: 058
     Dates: start: 20060401
  2. AZULFIDINE EN-TABS [Concomitant]
     Route: 048
     Dates: start: 20060101

REACTIONS (9)
  - ASTHENIA [None]
  - COLD SWEAT [None]
  - DECREASED APPETITE [None]
  - FATIGUE [None]
  - FEELING HOT [None]
  - HEADACHE [None]
  - INJECTION SITE PAIN [None]
  - PAIN [None]
  - THROAT TIGHTNESS [None]
